FAERS Safety Report 4720451-5 (Version None)
Quarter: 2005Q3

REPORT INFORMATION
  Report Type: 
  Country: None (occurrence: None)
  Receive Date: 20050721
  Receipt Date: 20050711
  Transmission Date: 20060218
  Serious: Yes (Life-Threatening, Hospitalization, Congenital Anomaly)
  Sender: FDA-Public Use
  Company Number: FR-SANOFI-SYNTHELABO-A02200501821

PATIENT
  Sex: Male
  Weight: 3.5 kg

DRUGS (5)
  1. STILNOX [Suspect]
     Indication: DEPRESSION
     Route: 064
     Dates: end: 20031103
  2. LAROXYL [Suspect]
     Indication: DEPRESSION
     Route: 064
     Dates: end: 20031103
  3. ACETAMINOPHEN [Suspect]
     Dosage: UNK
     Route: 064
     Dates: end: 20031105
  4. CATAPRES [Suspect]
     Route: 064
     Dates: end: 20031105
  5. MEDICINALPRODUCT NOT SPECIFIED BY SENDER [Concomitant]

REACTIONS (9)
  - HYPERTROPHIC CARDIOMYOPATHY [None]
  - HYPOGLYCAEMIA NEONATAL [None]
  - HYPOTONIA NEONATAL [None]
  - MACROSOMIA [None]
  - NEONATAL RESPIRATORY DISTRESS SYNDROME [None]
  - POLYHYDRAMNIOS [None]
  - PREMATURE BABY [None]
  - PULMONARY HYPERTENSION [None]
  - SOMNOLENCE NEONATAL [None]
